FAERS Safety Report 11813767 (Version 1)
Quarter: 2015Q4

REPORT INFORMATION
  Report Type: Spontaneous
  Country: US (occurrence: None)
  Receive Date: 20151208
  Receipt Date: 20151208
  Transmission Date: 20160305
  Serious: Yes (Life-Threatening, Other)
  Sender: FDA-Public Use
  Company Number: None

PATIENT
  Age: 21 Year
  Sex: Female
  Weight: 61.24 kg

DRUGS (6)
  1. VITAMIN D3 [Concomitant]
     Active Substance: CHOLECALCIFEROL
  2. ST. JOHNS WART [Concomitant]
  3. MELATONIN [Concomitant]
     Active Substance: MELATONIN
  4. VITAMIN B COMPLEX [Concomitant]
     Active Substance: CYANOCOBALAMIN\DEXPANTHENOL\NIACINAMIDE\PYRIDOXINE HYDROCHLORIDE\RIBOFLAVIN 5^-PHOSPHATE SODIUM\THIAMINE HYDROCHLORIDE\VITAMIN B COMPLEX
  5. ACCUTANE [Suspect]
     Active Substance: ISOTRETINOIN
     Indication: ACNE
     Route: 048
     Dates: start: 20150430, end: 20151031
  6. VALERIAN ROOT [Concomitant]
     Active Substance: VALERIAN

REACTIONS (6)
  - Suicidal ideation [None]
  - Panic attack [None]
  - Mental impairment [None]
  - Thinking abnormal [None]
  - Anxiety [None]
  - Depression [None]

NARRATIVE: CASE EVENT DATE: 20151201
